FAERS Safety Report 12650850 (Version 1)
Quarter: 2016Q3

REPORT INFORMATION
  Report Type: Spontaneous
  Country: US (occurrence: None)
  Receive Date: 20160812
  Receipt Date: 20160812
  Transmission Date: 20161109
  Serious: No
  Sender: FDA-Public Use
  Company Number: None

PATIENT
  Age: 69 Year
  Sex: Female
  Weight: 58.97 kg

DRUGS (3)
  1. PROBIOTICS [Concomitant]
     Active Substance: PROBIOTICS NOS
  2. LATANOPROST. [Suspect]
     Active Substance: LATANOPROST
     Indication: INTRAOCULAR PRESSURE TEST ABNORMAL
     Dosage: INOT THE EYE
     Route: 047
     Dates: start: 20160201, end: 20160801
  3. CALCIUM [Concomitant]
     Active Substance: CALCIUM

REACTIONS (7)
  - Eye pain [None]
  - Product substitution issue [None]
  - Device issue [None]
  - Accidental exposure to product [None]
  - Accidental overdose [None]
  - Overdose [None]
  - Eyelid margin crusting [None]

NARRATIVE: CASE EVENT DATE: 20160601
